FAERS Safety Report 8159135-2 (Version None)
Quarter: 2012Q1

REPORT INFORMATION
  Report Type: 
  Country: None (occurrence: None)
  Receive Date: 20120223
  Receipt Date: 20120214
  Transmission Date: 20120608
  Serious: Yes (Death, Hospitalization)
  Sender: FDA-Public Use
  Company Number: US-BAXTER-2012BH000932

PATIENT
  Sex: Female

DRUGS (1)
  1. DIANEAL [Suspect]
     Indication: PERITONEAL DIALYSIS
     Route: 033
     Dates: start: 20090101, end: 20120211

REACTIONS (5)
  - ULCER [None]
  - DIABETES MELLITUS [None]
  - DISEASE COMPLICATION [None]
  - HYPERGLYCAEMIA [None]
  - RENAL IMPAIRMENT [None]
